FAERS Safety Report 4971018-5 (Version None)
Quarter: 2006Q2

REPORT INFORMATION
  Report Type: 
  Country: None (occurrence: None)
  Receive Date: 20060411
  Receipt Date: 20060411
  Transmission Date: 20061013
  Serious: Yes (Other)
  Sender: FDA-Public Use
  Company Number: None

PATIENT
  Age: 7 Year
  Sex: Male
  Weight: 28.5766 kg

DRUGS (2)
  1. FOCALIN XR [Suspect]
     Indication: ATTENTION DEFICIT/HYPERACTIVITY DISORDER
     Dosage: FOCALINXR 15MG IN AM PO
     Route: 048
     Dates: start: 20041110, end: 20060324
  2. FOCALIN XR [Suspect]

REACTIONS (15)
  - AKATHISIA [None]
  - ANXIETY [None]
  - DISTURBANCE IN ATTENTION [None]
  - DRUG EFFECT DECREASED [None]
  - DRUG INEFFECTIVE [None]
  - FEELING ABNORMAL [None]
  - FORMICATION [None]
  - HEART RATE INCREASED [None]
  - ILL-DEFINED DISORDER [None]
  - MICTURITION URGENCY [None]
  - MIDDLE INSOMNIA [None]
  - MOVEMENT DISORDER [None]
  - PANIC ATTACK [None]
  - PARANOIA [None]
  - PSYCHOMOTOR HYPERACTIVITY [None]
